FAERS Safety Report 5422516-1 (Version None)
Quarter: 2007Q3

REPORT INFORMATION
  Report Type: 
  Country: None (occurrence: None)
  Receive Date: 20070822
  Receipt Date: 20070816
  Transmission Date: 20080115
  Serious: Yes (Hospitalization)
  Sender: FDA-Public Use
  Company Number: FR-ELI_LILLY_AND_COMPANY-FR200708000642

PATIENT
  Age: 77 Year
  Sex: Female

DRUGS (8)
  1. FORTEO [Suspect]
     Indication: OSTEOPOROSIS
     Dosage: 20 UG, DAILY (1/D)
     Route: 058
     Dates: start: 20070518, end: 20070801
  2. KARDEGIC [Concomitant]
     Dosage: 75 MG, DAILY (1/D)
     Route: 048
  3. TAHOR [Concomitant]
     Dosage: 40 MG, DAILY (1/D)
     Route: 048
  4. CORDARONE [Concomitant]
     Dosage: 200 MG, DAILY (1/D)
     Route: 048
  5. INIPOMP [Concomitant]
     Dosage: 20 MG, DAILY (1/D)
     Route: 048
  6. IMOVANE [Concomitant]
     Dosage: 1 D/F, DAILY (1/D)
     Route: 048
  7. SEREVENT [Concomitant]
     Dosage: UNK, AS NEEDED
  8. PULMICORT [Concomitant]
     Dosage: UNK, AS NEEDED

REACTIONS (3)
  - ASTHENIA [None]
  - MUSCULOSKELETAL CHEST PAIN [None]
  - MYOCARDIAL INFARCTION [None]
